FAERS Safety Report 12167632 (Version 1)
Quarter: 2016Q1

REPORT INFORMATION
  Report Type: Spontaneous
  Country: US (occurrence: None)
  Receive Date: 20160309
  Receipt Date: 20160309
  Transmission Date: 20160526
  Serious: Yes (Other)
  Sender: FDA-Public Use
  Company Number: None

PATIENT
  Age: 66 Year
  Sex: Female
  Weight: 104.33 kg

DRUGS (7)
  1. LATANOPROST OPT SOLN 2.5 ML 0.005% BAUSCH + LOMB [Suspect]
     Active Substance: LATANOPROST
     Indication: OPTIC NERVE COMPRESSION
     Dosage: 1 DROP AT BETTIME INTO THE EYE
     Route: 031
  2. ASPIRIN. [Concomitant]
     Active Substance: ASPIRIN
  3. CALCIUM +D [Concomitant]
     Active Substance: CALCIUM\VITAMIN D
  4. MULTIVITAMIN AGE 50+ [Concomitant]
  5. VITAMIN D3 [Concomitant]
     Active Substance: CHOLECALCIFEROL
  6. PROZAC [Concomitant]
     Active Substance: FLUOXETINE HYDROCHLORIDE
  7. MAGNESIUM [Concomitant]
     Active Substance: MAGNESIUM

REACTIONS (2)
  - Vomiting [None]
  - Eye pain [None]

NARRATIVE: CASE EVENT DATE: 20151215
